FAERS Safety Report 5509996-8 (Version None)
Quarter: 2007Q4

REPORT INFORMATION
  Report Type: 
  Country: None (occurrence: None)
  Receive Date: 20071107
  Receipt Date: 20071107
  Transmission Date: 20080405
  Serious: Yes (Other)
  Sender: FDA-Public Use
  Company Number: None

PATIENT
  Age: 82 Year
  Sex: Female

DRUGS (1)
  1. BONIVA [Suspect]
     Dosage: 1 MONTHLY
     Dates: start: 20070821, end: 20070821

REACTIONS (11)
  - ARTHRALGIA [None]
  - BLOOD PRESSURE INCREASED [None]
  - GAIT DISTURBANCE [None]
  - GINGIVAL PAIN [None]
  - HEADACHE [None]
  - JAW DISORDER [None]
  - MYALGIA [None]
  - OEDEMA PERIPHERAL [None]
  - PRURITUS [None]
  - TOOTHACHE [None]
  - VISUAL DISTURBANCE [None]
